FAERS Safety Report 8211007-0 (Version None)
Quarter: 2012Q1

REPORT INFORMATION
  Report Type: 
  Country: None (occurrence: None)
  Receive Date: 20120315
  Receipt Date: 20120312
  Transmission Date: 20120608
  Serious: Yes (Death)
  Sender: FDA-Public Use
  Company Number: PHHY2012NL005618

PATIENT
  Sex: Female
  Weight: 70 kg

DRUGS (5)
  1. DESMOPRESSIN ACETATE [Concomitant]
     Dosage: 2 DRP, DAILY
     Route: 045
  2. ZOMETA [Suspect]
     Dosage: 4 MG/5ML 1X PER 42 DAYS
     Dates: start: 20110831
  3. ZOMETA [Suspect]
     Dosage: 4 MG/5ML 1X PER 42 DAYS
     Dates: start: 20120101
  4. ZOMETA [Suspect]
     Indication: METASTASES TO BONE
     Dosage: 4 MG/5ML 1X PER 42 DAYS
     Dates: start: 20110201
  5. ZOMETA [Suspect]
     Dosage: 4 MG/5ML 1X PER 42 DAYS
     Dates: start: 20111213

REACTIONS (4)
  - HEPATIC FAILURE [None]
  - NEOPLASM MALIGNANT [None]
  - NEOPLASM PROGRESSION [None]
  - GENERAL PHYSICAL HEALTH DETERIORATION [None]
